FAERS Safety Report 9282594 (Version 1)
Quarter: 2013Q2

REPORT INFORMATION
  Report Type: Spontaneous
  Country: US (occurrence: None)
  Receive Date: 20130509
  Receipt Date: 20130509
  Transmission Date: 20140414
  Serious: Yes (Other)
  Sender: FDA-Public Use
  Company Number: None

PATIENT
  Age: 29 Year
  Sex: Male

DRUGS (1)
  1. BUPRENORPHINE/NALOXONE [Suspect]
     Indication: SUBSTANCE ABUSE
     Route: 048
     Dates: start: 20130508, end: 20130508

REACTIONS (1)
  - Drug withdrawal syndrome [None]
